FAERS Safety Report 8549483-6 (Version None)
Quarter: 2012Q3

REPORT INFORMATION
  Report Type: 
  Country: None (occurrence: None)
  Receive Date: 20120730
  Receipt Date: 20120724
  Transmission Date: 20120928
  Serious: Yes (Hospitalization)
  Sender: FDA-Public Use
  Company Number: DE-ROCHE-1089516

PATIENT
  Age: 74 Year
  Sex: Male
  Weight: 72 kg

DRUGS (6)
  1. CALCIUM CARBONATE [Concomitant]
     Route: 048
  2. L-THYROXIN 125 [Concomitant]
     Indication: HYPOTHYROIDISM
     Route: 048
  3. MABTHERA [Suspect]
     Indication: RHEUMATOID ARTHRITIS
     Route: 042
     Dates: start: 20110602
  4. METHYLPREDNISOLONE [Concomitant]
     Indication: RHEUMATOID ARTHRITIS
     Dosage: DATE OF LAST DOSE PRIOR TO SAE 26/MAR/2012
     Route: 048
     Dates: start: 20060601
  5. RAMIPRIL [Concomitant]
     Route: 048
  6. CALCIUM D3 [Concomitant]
     Indication: RHEUMATOID ARTHRITIS
     Route: 048
     Dates: start: 20080701

REACTIONS (1)
  - CARDIOVASCULAR DISORDER [None]
